FAERS Safety Report 14908838 (Version 1)
Quarter: 2018Q2

REPORT INFORMATION
  Report Type: Spontaneous
  Country: US (occurrence: US)
  Receive Date: 20180430
  Receipt Date: 20180430
  Transmission Date: 20180711
  Serious: Yes (Life-Threatening)
  Sender: FDA-Public Use
  Company Number: None

PATIENT
  Age: 11 Year
  Sex: Male
  Weight: 33.75 kg

DRUGS (6)
  1. INTUNIV [Concomitant]
     Active Substance: GUANFACINE HYDROCHLORIDE
  2. FLUOXETINE [Suspect]
     Active Substance: FLUOXETINE HYDROCHLORIDE
  3. FLUOXETINE [Suspect]
     Active Substance: FLUOXETINE HYDROCHLORIDE
     Indication: DEPRESSION
     Dosage: ?          QUANTITY:30 CAPSULE(S);?
     Route: 048
  4. VITAMIN D [Concomitant]
     Active Substance: CHOLECALCIFEROL
  5. CONCERTA [Concomitant]
     Active Substance: METHYLPHENIDATE HYDROCHLORIDE
  6. VITAMIN C [Concomitant]
     Active Substance: ASCORBIC ACID

REACTIONS (5)
  - Product substitution issue [None]
  - Homicidal ideation [None]
  - Verbal abuse [None]
  - Suicidal ideation [None]
  - Anger [None]

NARRATIVE: CASE EVENT DATE: 20180419
